FAERS Safety Report 7851510-6 (Version None)
Quarter: 2011Q4

REPORT INFORMATION
  Report Type: 
  Country: None (occurrence: None)
  Receive Date: 20111017
  Receipt Date: 20111005
  Transmission Date: 20120403
  Serious: Yes (Other)
  Sender: FDA-Public Use
  Company Number: 2011027631

PATIENT
  Age: 41 Year
  Sex: Male
  Weight: 104.3273 kg

DRUGS (6)
  1. ZONEGRAN [Concomitant]
  2. BACLOFEN [Concomitant]
  3. CLARITIN [Concomitant]
  4. ZEMAIRA [Suspect]
     Indication: ALPHA-1 ANTI-TRYPSIN DEFICIENCY
     Dosage: (60 MG/KG 1X/WEEK INTRAVENOUS (NOT OTHERWISE SPECIFIED))
     Route: 042
     Dates: start: 20060801
  5. ZEMAIRA [Suspect]
     Indication: ALPHA-1 ANTI-TRYPSIN DEFICIENCY
     Dosage: (60 MG/KG 1X/WEEK INTRAVENOUS (NOT OTHERWISE SPECIFIED))
     Route: 042
     Dates: start: 20110214
  6. ETODOLAC [Concomitant]

REACTIONS (6)
  - MALAISE [None]
  - INFLUENZA LIKE ILLNESS [None]
  - STAPHYLOCOCCAL PHARYNGITIS [None]
  - PAIN [None]
  - PARANASAL SINUS HYPERSECRETION [None]
  - OROPHARYNGITIS FUNGAL [None]
